FAERS Safety Report 4621556-X (Version None)
Quarter: 2005Q1

REPORT INFORMATION
  Report Type: 
  Country: None (occurrence: None)
  Receive Date: 20050328
  Receipt Date: 20000801
  Transmission Date: 20050727
  Serious: Yes (Death)
  Sender: FDA-Public Use
  Company Number: 6190

PATIENT
  Age: 36 Year
  Sex: Female

DRUGS (9)
  1. VANCOMYCIN [Suspect]
     Dosage: 1 G BID
  2. ACYCLOVIR [Suspect]
     Indication: HERPES SIMPLEX
  3. ETOPOSIDE [Suspect]
  4. GENTAMICIN [Suspect]
  5. FLUCONAZOLE [Suspect]
  6. CEFTAZIDIME [Suspect]
  7. IMIPENEM [Suspect]
  8. IDARUBICIN ARA-C [Suspect]
  9. ONDANSETRON [Suspect]

REACTIONS (4)
  - ERYTHEMA MULTIFORME [None]
  - GENERAL PHYSICAL HEALTH DETERIORATION [None]
  - SHOCK [None]
  - TOXIC EPIDERMAL NECROLYSIS [None]
